FAERS Safety Report 17466026 (Version 1)
Quarter: 2020Q1

REPORT INFORMATION
  Report Type: Spontaneous
  Country: FR (occurrence: FR)
  Receive Date: 20200227
  Receipt Date: 20200227
  Transmission Date: 20200409
  Serious: Yes (Death)
  Sender: FDA-Public Use
  Company Number: FR-ORION CORPORATION ORION PHARMA-20_00008550

PATIENT
  Age: 86 Year
  Sex: Female
  Weight: 77 kg

DRUGS (6)
  1. FLUOXETINE [Concomitant]
     Active Substance: FLUOXETINE HYDROCHLORIDE
     Route: 065
  2. IMETH [Suspect]
     Active Substance: METHOTREXATE SODIUM
     Indication: RHEUMATOID ARTHRITIS
     Dosage: 10 MG, SCORED TABLET
     Route: 048
     Dates: start: 20200121
  3. PLAVIX [Concomitant]
     Active Substance: CLOPIDOGREL BISULFATE
     Route: 065
  4. REPAGLINIDE. [Concomitant]
     Active Substance: REPAGLINIDE
     Route: 065
  5. SOLUPRED [Concomitant]
     Route: 065
  6. KARDEGIC [Concomitant]
     Active Substance: ASPIRIN DL-LYSINE
     Route: 065

REACTIONS (8)
  - Bone marrow failure [Fatal]
  - Diarrhoea [Fatal]
  - Mouth ulceration [Fatal]
  - Multiple organ dysfunction syndrome [Fatal]
  - Dehydration [Fatal]
  - Overdose [Fatal]
  - Incorrect dosage administered [Not Recovered/Not Resolved]
  - Asthenia [Fatal]

NARRATIVE: CASE EVENT DATE: 202001
